FAERS Safety Report 17015236 (Version 1)
Quarter: 2019Q4

REPORT INFORMATION
  Report Type: Spontaneous
  Country: US (occurrence: US)
  Receive Date: 20191003
  Receipt Date: 20191003
  Transmission Date: 20200122
  Serious: No
  Sender: FDA-Public Use
  Company Number: None

PATIENT
  Age: 47 Year
  Sex: Female

DRUGS (1)
  1. CYCLOSPORINE MODIFIED [Suspect]
     Active Substance: CYCLOSPORINE
     Route: 048
     Dates: start: 201907

REACTIONS (4)
  - Pain [None]
  - Arthralgia [None]
  - Pain in extremity [None]
  - Menstruation irregular [None]

NARRATIVE: CASE EVENT DATE: 20191003
